FAERS Safety Report 24035843 (Version 1)
Quarter: 2024Q3

REPORT INFORMATION
  Report Type: Report from Study
  Country: CH (occurrence: US)
  Receive Date: 20240701
  Receipt Date: 20240701
  Transmission Date: 20241016
  Serious: Yes (Other)
  Sender: NOVARTIS
  Company Number: CH-002147023-NVSC2024US133506

PATIENT
  Age: 47 Year
  Sex: Female

DRUGS (1)
  1. GLEEVEC [Suspect]
     Active Substance: IMATINIB MESYLATE
     Indication: Chronic myeloid leukaemia
     Dosage: UNK (2 YEARS OR MORE AGO)
     Route: 065

REACTIONS (6)
  - Fatigue [Unknown]
  - Diarrhoea [Unknown]
  - Memory impairment [Unknown]
  - Discouragement [Unknown]
  - Anxiety [Unknown]
  - Headache [Unknown]
